FAERS Safety Report 5124181-X (Version None)
Quarter: 2006Q4

REPORT INFORMATION
  Report Type: 
  Country: None (occurrence: None)
  Receive Date: 20061010
  Receipt Date: 20060711
  Transmission Date: 20070319
  Serious: No
  Sender: FDA-Public Use
  Company Number: US-BRISTOL-MYERS SQUIBB COMPANY-13438437

PATIENT
  Age: 57 Year
  Sex: Male

DRUGS (4)
  1. AVAPRO [Suspect]
  2. CLONIDINE [Suspect]
  3. MINOXIDIL [Suspect]
  4. PROCARDIA XL [Suspect]

REACTIONS (2)
  - HEART RATE DECREASED [None]
  - HYPERTENSION [None]
